FAERS Safety Report 13362498 (Version 2)
Quarter: 2017Q2

REPORT INFORMATION
  Report Type: Spontaneous
  Country: US (occurrence: US)
  Receive Date: 20170323
  Receipt Date: 20170418
  Transmission Date: 20170830
  Serious: Yes (Other)
  Sender: FDA-Public Use
  Company Number: US-PFIZER INC-2017118979

PATIENT
  Age: 71 Year
  Sex: Female
  Weight: 79.38 kg

DRUGS (3)
  1. IBRANCE [Suspect]
     Active Substance: PALBOCICLIB
     Indication: BREAST CANCER
     Dosage: UNK, 1X/DAY
     Route: 048
     Dates: start: 201702
  2. LETROZOLE. [Concomitant]
     Active Substance: LETROZOLE
     Dosage: 2.5 MG, UNK
  3. IBRANCE [Suspect]
     Active Substance: PALBOCICLIB
     Dosage: 125 MG, CYCLIC(125 MG 3 WKS + 1WK OFF)
     Route: 048

REACTIONS (3)
  - Kidney infection [Unknown]
  - Urinary tract infection [Recovering/Resolving]
  - Cystitis [Unknown]
